FAERS Safety Report 15852412 (Version 2)
Quarter: 2019Q1

REPORT INFORMATION
  Report Type: Spontaneous
  Country: CN (occurrence: CN)
  Receive Date: 20190122
  Receipt Date: 20190205
  Transmission Date: 20190417
  Serious: Yes (Hospitalization)
  Sender: FDA-Public Use
  Company Number: CN-ELI_LILLY_AND_COMPANY-CN201901008248

PATIENT
  Age: 63 Year
  Sex: Female
  Weight: 57.5 kg

DRUGS (6)
  1. SITAGLIPTIN [Concomitant]
     Active Substance: SITAGLIPTIN
     Indication: PRODUCT USED FOR UNKNOWN INDICATION
     Dosage: 1 DF, DAILY
     Route: 048
  2. HUMULIN NOS [Suspect]
     Active Substance: INSULIN HUMAN
     Dosage: 4 IU, DAILY (AT NOON)
     Route: 058
  3. HUMULIN NOS [Suspect]
     Active Substance: INSULIN HUMAN
     Indication: DIABETES MELLITUS
     Dosage: 10 IU, EACH MORNING
     Route: 058
  4. METFORMIN [Concomitant]
     Active Substance: METFORMIN HYDROCHLORIDE
     Indication: PRODUCT USED FOR UNKNOWN INDICATION
     Dosage: 1 DF, TID
     Route: 048
  5. ACARBOSE. [Concomitant]
     Active Substance: ACARBOSE
     Indication: PRODUCT USED FOR UNKNOWN INDICATION
     Dosage: 1 DF, TID
     Route: 048
     Dates: start: 2003
  6. HUMULIN NOS [Suspect]
     Active Substance: INSULIN HUMAN
     Dosage: 10 IU, DAILY (AT NIGHT)
     Route: 058

REACTIONS (6)
  - Pyrexia [Unknown]
  - Nasopharyngitis [Recovered/Resolved]
  - Blood glucose increased [Recovered/Resolved]
  - Confusional state [Unknown]
  - Blood glucose increased [Recovering/Resolving]
  - Blood glucose increased [Unknown]
